FAERS Safety Report 8832896 (Version 1)
Quarter: 2012Q4

REPORT INFORMATION
  Report Type: 
  Country: ES (occurrence: ES)
  Receive Date: 20121010
  Receipt Date: 20121010
  Transmission Date: 20130627
  Serious: Yes (Hospitalization)
  Sender: FDA-Public Use
  Company Number: ES-MERCK-1210ESP003040

PATIENT
  Age: 63 Year
  Sex: Male

DRUGS (1)
  1. SYCREST [Suspect]
     Indication: BIPOLAR II DISORDER
     Dosage: 15 mg, qd
     Route: 060
     Dates: start: 2012, end: 2012

REACTIONS (2)
  - Laryngeal oedema [Recovered/Resolved]
  - Off label use [Unknown]
